FAERS Safety Report 13646025 (Version 1)
Quarter: 2017Q2

REPORT INFORMATION
  Report Type: Other
  Country: JP (occurrence: JP)
  Receive Date: 20170613
  Receipt Date: 20170613
  Transmission Date: 20170830
  Serious: Yes (Hospitalization)
  Sender: FDA-Public Use
  Company Number: JP-ACTELION-A-CH2017-154799

PATIENT
  Age: 54 Year
  Sex: Male

DRUGS (1)
  1. EPOPROSTENOL SODIUM. [Suspect]
     Active Substance: EPOPROSTENOL SODIUM
     Indication: PULMONARY HYPERTENSION
     Route: 042

REACTIONS (9)
  - Colon cancer [Unknown]
  - Sigmoidectomy [Unknown]
  - Oedema mucosal [Recovering/Resolving]
  - Drug effect incomplete [Unknown]
  - Intestinal stenosis [Unknown]
  - Gastrointestinal oedema [Recovering/Resolving]
  - Colostomy [Unknown]
  - Intestinal ulcer [Recovering/Resolving]
  - Rectal laceration postoperative [Recovering/Resolving]
